FAERS Safety Report 6095955-6 (Version None)
Quarter: 2009Q1

REPORT INFORMATION
  Report Type: 
  Country: None (occurrence: None)
  Receive Date: 20090227
  Receipt Date: 20080805
  Transmission Date: 20090719
  Serious: No
  Sender: FDA-Public Use
  Company Number: A0739102A

PATIENT
  Age: 35 Year
  Sex: Female
  Weight: 54.5 kg

DRUGS (3)
  1. LAMICTAL [Suspect]
     Indication: BIPOLAR DISORDER
     Dosage: 100MG PER DAY
     Route: 048
     Dates: start: 20080711, end: 20080722
  2. LEXAPRO [Concomitant]
  3. CHANTIX [Concomitant]

REACTIONS (1)
  - RASH [None]
